FAERS Safety Report 8034318-0 (Version None)
Quarter: 2012Q1

REPORT INFORMATION
  Report Type: 
  Country: None (occurrence: None)
  Receive Date: 20120110
  Receipt Date: 20120106
  Transmission Date: 20120608
  Serious: Yes (Hospitalization)
  Sender: FDA-Public Use
  Company Number: PHEH2012US000798

PATIENT
  Sex: Male

DRUGS (9)
  1. CYTOXAN [Concomitant]
  2. ANTIVERT [Concomitant]
  3. BACTRIM [Concomitant]
  4. SANDIMMUNE [Suspect]
     Indication: LUNG TRANSPLANT
  5. LIPITOR [Concomitant]
  6. COMPAZINE [Concomitant]
  7. IMITREX [Concomitant]
  8. PREDNISONE TAB [Concomitant]
  9. IMODIUM [Concomitant]

REACTIONS (3)
  - INFLUENZA [None]
  - MIGRAINE [None]
  - PNEUMONIA [None]
